FAERS Safety Report 15696391 (Version 1)
Quarter: 2018Q4

REPORT INFORMATION
  Report Type: Other
  Country: CA (occurrence: CA)
  Receive Date: 20181206
  Receipt Date: 20181206
  Transmission Date: 20190205
  Serious: Yes (Hospitalization)
  Sender: FDA-Public Use
  Company Number: CA-HLSUS-2018-CA-001559

PATIENT
  Sex: Male

DRUGS (3)
  1. CLOZARIL [Suspect]
     Active Substance: CLOZAPINE
     Dosage: 500 MG QHS
     Route: 048
     Dates: start: 20090923
  2. RISPERDAL CONSTA [Concomitant]
     Active Substance: RISPERIDONE
     Dosage: 62.5 Q2 WEEKS, NEXT INJECTION OCT 2-2018
  3. EPIVAL [Concomitant]
     Active Substance: DIVALPROEX SODIUM
     Dosage: 250 MG QAM, 500 MG QHS

REACTIONS (5)
  - Vomiting [None]
  - Small intestinal perforation [Unknown]
  - Nausea [None]
  - Pneumatosis [Unknown]
  - Abdominal distension [None]
